FAERS Safety Report 6060028-5 (Version None)
Quarter: 2009Q1

REPORT INFORMATION
  Report Type: 
  Country: None (occurrence: None)
  Receive Date: 20090130
  Receipt Date: 20090128
  Transmission Date: 20090719
  Serious: Yes (Other)
  Sender: FDA-Public Use
  Company Number: US-MERCK-0901USA04049

PATIENT
  Age: 71 Year
  Sex: Female
  Weight: 70 kg

DRUGS (7)
  1. COSOPT [Suspect]
     Indication: GLAUCOMA
     Route: 047
  2. XALATAN [Suspect]
     Indication: GLAUCOMA
     Route: 065
  3. ALPHAGAN [Suspect]
     Indication: GLAUCOMA
     Route: 065
  4. LORAZEPAM [Concomitant]
     Route: 065
  5. CLONAZEPAM [Concomitant]
     Route: 065
  6. MIRTAZAPINE [Concomitant]
     Route: 065
  7. CITALOPRAM [Concomitant]
     Route: 065

REACTIONS (6)
  - CIRCUMSTANCE OR INFORMATION CAPABLE OF LEADING TO MEDICATION ERROR [None]
  - DRUG PRESCRIBING ERROR [None]
  - INTRAOCULAR PRESSURE FLUCTUATION [None]
  - INTRAOCULAR PRESSURE INCREASED [None]
  - LEUKAEMIA [None]
  - THYROID CANCER [None]
